FAERS Safety Report 4911790-3 (Version None)
Quarter: 2006Q1

REPORT INFORMATION
  Report Type: 
  Country: None (occurrence: None)
  Receive Date: 20060213
  Receipt Date: 20060213
  Transmission Date: 20060701
  Serious: Yes (Other)
  Sender: FDA-Public Use
  Company Number: None

PATIENT
  Sex: Female
  Weight: 99 kg

DRUGS (3)
  1. FLUOROURACIL [Suspect]
     Indication: BREAST CANCER
     Dosage: 1025 MG
     Dates: start: 20060113
  2. CYCLOPHOSPHAMIDE [Suspect]
     Dosage: 1025 MG
     Dates: start: 20060113
  3. EPIRUBICIN [Suspect]
     Dosage: 203 MG
     Dates: start: 20060113

REACTIONS (2)
  - NEUTROPHIL COUNT ABNORMAL [None]
  - PLATELET COUNT ABNORMAL [None]
